FAERS Safety Report 4714464-7 (Version None)
Quarter: 2005Q3

REPORT INFORMATION
  Report Type: 
  Country: None (occurrence: None)
  Receive Date: 20050705
  Receipt Date: 20050222
  Transmission Date: 20060218
  Serious: Yes (Other)
  Sender: FDA-Public Use
  Company Number: 2005-0008085

PATIENT
  Sex: Male

DRUGS (4)
  1. VIREAD [Suspect]
     Indication: HIV INFECTION
     Dosage: 300 MG, ORAL
     Route: 048
  2. TRIZIVIR [Concomitant]
  3. LPV (LOPINAVIR) [Concomitant]
  4. SAQUINAVIR (SAQUINAVIR) [Concomitant]

REACTIONS (1)
  - RENAL TUBULAR ACIDOSIS [None]
